FAERS Safety Report 4416611-3 (Version None)
Quarter: 2004Q3

REPORT INFORMATION
  Report Type: 
  Country: None (occurrence: None)
  Receive Date: 20040802
  Receipt Date: 20040726
  Transmission Date: 20050211
  Serious: No
  Sender: FDA-Public Use
  Company Number: 04H-028-0268092

PATIENT
  Age: 21 Year
  Sex: Female
  Weight: 80 kg

DRUGS (9)
  1. BUPIVACAINE HCL AND EPINEPHRINE [Suspect]
     Indication: ANALGESIC EFFECT
     Dosage: SEE IMAGE
     Route: 008
  2. BUPIVACAINE HCL [Suspect]
     Indication: ANALGESIC EFFECT
     Dosage: 8 ML/HR, CONTINUOUS, EPIDURAL
     Route: 008
  3. SULFENTANIL [Concomitant]
  4. PROPOFOL [Concomitant]
  5. MORPHINE [Concomitant]
  6. LIDOCAINE [Concomitant]
  7. FENTANYL [Concomitant]
  8. ISOFLURANE [Concomitant]
  9. NITROUS OXIDE [Concomitant]

REACTIONS (1)
  - HORNER'S SYNDROME [None]
